FAERS Safety Report 4865608-8 (Version None)
Quarter: 2005Q4

REPORT INFORMATION
  Report Type: 
  Country: None (occurrence: None)
  Receive Date: 20051221
  Receipt Date: 20051221
  Transmission Date: 20060501
  Serious: Yes (Other)
  Sender: FDA-Public Use
  Company Number: None

PATIENT
  Sex: Male
  Weight: 86.1834 kg

DRUGS (1)
  1. FLUOXETINE [Suspect]
     Indication: PANIC DISORDER
     Dosage: 60 MG DAILY ORAL
     Route: 048
     Dates: start: 20020905, end: 20021215

REACTIONS (3)
  - DISEASE RECURRENCE [None]
  - DRUG INEFFECTIVE [None]
  - THERAPEUTIC RESPONSE UNEXPECTED WITH DRUG SUBSTITUTION [None]
